FAERS Safety Report 26061938 (Version 2)
Quarter: 2025Q4

REPORT INFORMATION
  Report Type: Spontaneous
  Country: TR (occurrence: TR)
  Receive Date: 20251119
  Receipt Date: 20251203
  Transmission Date: 20260119
  Serious: Yes (Other)
  Sender: RHYTHM PHARMACEUTICALS
  Company Number: TR-RHYTHM PHARMACEUTICALS, INC.-2025RHM000344

PATIENT

DRUGS (6)
  1. IMCIVREE [Suspect]
     Active Substance: SETMELANOTIDE
     Indication: Leptin receptor deficiency
     Dosage: 1 MILLIGRAM, QD
     Route: 058
     Dates: start: 202408, end: 202409
  2. IMCIVREE [Suspect]
     Active Substance: SETMELANOTIDE
     Dosage: 1 MILLIGRAM, QD
     Route: 058
     Dates: start: 202409, end: 202412
  3. IMCIVREE [Suspect]
     Active Substance: SETMELANOTIDE
     Dosage: 2 MILLIGRAM, QD
     Route: 058
     Dates: start: 202412, end: 20250424
  4. IMCIVREE [Suspect]
     Active Substance: SETMELANOTIDE
     Dosage: 3 MILLIGRAM, QD
     Route: 058
  5. IMCIVREE [Suspect]
     Active Substance: SETMELANOTIDE
     Dosage: 1 MILLIGRAM, QD
     Route: 058
     Dates: start: 20251003
  6. IMCIVREE [Suspect]
     Active Substance: SETMELANOTIDE
     Dosage: 2 MILLIGRAM, QD
     Route: 058
     Dates: start: 20251017

REACTIONS (7)
  - Dysplastic naevus [Recovered/Resolved]
  - Product availability issue [Recovered/Resolved]
  - Therapy interrupted [Recovered/Resolved]
  - Melanocytic naevus [Not Recovered/Not Resolved]
  - Skin hyperpigmentation [Unknown]
  - Abdominal pain [Recovered/Resolved]
  - Nausea [Recovered/Resolved]

NARRATIVE: CASE EVENT DATE: 20241101
